FAERS Safety Report 7603016-7 (Version None)
Quarter: 2011Q3

REPORT INFORMATION
  Report Type: 
  Country: None (occurrence: None)
  Receive Date: 20110701
  Receipt Date: 20110621
  Transmission Date: 20111222
  Serious: Yes (Death)
  Sender: FDA-Public Use
  Company Number: 1000021884

PATIENT
  Age: 71 Year
  Sex: Male

DRUGS (9)
  1. ASS (ACETYLSALICYLIC ACID) (ACETYLSALICYLIC ACID) [Concomitant]
  2. ROFLUMILAST (ROFLUMILAST) (500 MICROGRAM, TABLETS) [Suspect]
     Indication: CHRONIC OBSTRUCTIVE PULMONARY DISEASE
     Dosage: 500 MCG (500 MCG, 1 IN 1 D), ORAL
     Route: 048
     Dates: start: 20110210, end: 20110328
  3. FORMOTEROL (FORMOTEROL) (FORMOTEROL) [Concomitant]
  4. METOPROLOL SUCCINATE [Concomitant]
  5. SIMVASTATIN [Concomitant]
  6. MOLSIDOMINE (MOLSIDOMINE) (MOLSIDOMINE) [Concomitant]
  7. DIOVAN [Concomitant]
  8. ALLOPURINOL [Concomitant]
  9. NOVOPULMON (BUDESONIDE) (BUDESONIDE) [Concomitant]

REACTIONS (1)
  - FALL [None]
